FAERS Safety Report 7064456-0 (Version None)
Quarter: 2010Q4

REPORT INFORMATION
  Report Type: 
  Country: None (occurrence: None)
  Receive Date: 20101027
  Receipt Date: 20101020
  Transmission Date: 20110411
  Serious: Yes (Hospitalization)
  Sender: FDA-Public Use
  Company Number: NO-PFIZER INC-2010133155

PATIENT
  Sex: Male

DRUGS (3)
  1. SUTENT [Suspect]
     Indication: RENAL CANCER METASTATIC
     Dosage: 50 MG, 1X/DAY
     Dates: start: 20100901
  2. MEDROL [Concomitant]
     Indication: INTRACRANIAL PRESSURE INCREASED
     Dosage: 8 MG, 3X/DAY
  3. SOMAC [Concomitant]
     Dosage: 40 MG, 1X/DAY

REACTIONS (2)
  - ECCHYMOSIS [None]
  - HYPOTONIA [None]
